FAERS Safety Report 12857873 (Version 1)
Quarter: 2016Q4

REPORT INFORMATION
  Report Type: Spontaneous
  Country: US (occurrence: US)
  Receive Date: 20161018
  Receipt Date: 20161018
  Transmission Date: 20170207
  Serious: No
  Sender: FDA-Public Use
  Company Number: US-SA-2015SA191083

PATIENT
  Age: 56 Year
  Sex: Female

DRUGS (3)
  1. PRISTIQ EXTENDED-RELEASE [Concomitant]
     Active Substance: DESVENLAFAXINE SUCCINATE
     Dates: start: 20121029, end: 20150406
  2. LEMTRADA [Suspect]
     Active Substance: ALEMTUZUMAB
     Route: 042
  3. BACLOFEN. [Concomitant]
     Active Substance: BACLOFEN
     Dates: start: 20150404, end: 20150917

REACTIONS (2)
  - Laboratory test abnormal [Unknown]
  - Fatigue [Unknown]
